FAERS Safety Report 5749145-4 (Version None)
Quarter: 2008Q2

REPORT INFORMATION
  Report Type: 
  Country: None (occurrence: None)
  Receive Date: 20080527
  Receipt Date: 20080516
  Transmission Date: 20081010
  Serious: Yes (Other)
  Sender: FDA-Public Use
  Company Number: US-JNJFOC-20080504212

PATIENT
  Sex: Female
  Weight: 97.98 kg

DRUGS (11)
  1. REMICADE [Suspect]
     Indication: COLITIS ULCERATIVE
     Route: 042
  2. REMICADE [Suspect]
     Indication: RHEUMATOID ARTHRITIS
     Dosage: 500 MG EVERY 7-8 WEEKS
     Route: 042
  3. PROTONIX [Concomitant]
  4. DICLOXACILLIN [Concomitant]
  5. CIPRO [Concomitant]
     Route: 048
  6. LASIX [Concomitant]
  7. COUMADIN [Concomitant]
  8. FLONASE [Concomitant]
  9. HYDROCORTISONE [Concomitant]
  10. TOPROL-XL [Concomitant]
  11. PROVERA [Concomitant]

REACTIONS (1)
  - B-CELL LYMPHOMA [None]
